FAERS Safety Report 5190571-2 (Version None)
Quarter: 2006Q4

REPORT INFORMATION
  Report Type: 
  Country: None (occurrence: None)
  Receive Date: 20061222
  Receipt Date: 20061213
  Transmission Date: 20070319
  Serious: Yes (Other)
  Sender: FDA-Public Use
  Company Number: US-JNJFOC-20061203854

PATIENT
  Age: 9 Year
  Sex: Male

DRUGS (2)
  1. CONCERTA [Suspect]
     Indication: AUTISM SPECTRUM DISORDER
     Route: 048
  2. ABILIFY [Interacting]
     Indication: DRUG USE FOR UNKNOWN INDICATION

REACTIONS (2)
  - DRUG INTERACTION [None]
  - TARDIVE DYSKINESIA [None]
